FAERS Safety Report 24559338 (Version 3)
Quarter: 2024Q4

REPORT INFORMATION
  Report Type: Report from Study
  Country: CO (occurrence: CO)
  Receive Date: 20241029
  Receipt Date: 20241231
  Transmission Date: 20250115
  Serious: Yes (Hospitalization, Other)
  Sender: TAKEDA
  Company Number: CO-TAKEDA-2024TUS076649

PATIENT
  Age: 19 Year
  Sex: Female
  Weight: 40 kg

DRUGS (2)
  1. VEDOLIZUMAB [Suspect]
     Active Substance: VEDOLIZUMAB
     Indication: Colitis ulcerative
     Dosage: 300 MILLIGRAM, Q6WEEKS
     Dates: start: 20240724
  2. VEDOLIZUMAB [Suspect]
     Active Substance: VEDOLIZUMAB
     Dosage: 300 MILLIGRAM

REACTIONS (12)
  - Colitis [Unknown]
  - Melaena [Unknown]
  - Influenza [Unknown]
  - Dairy intolerance [Recovered/Resolved]
  - Gastrointestinal inflammation [Unknown]
  - Gastritis [Unknown]
  - Costochondritis [Unknown]
  - Chest pain [Unknown]
  - Abdominal pain [Unknown]
  - Abdominal distension [Recovered/Resolved]
  - Headache [Recovered/Resolved]
  - Back pain [Unknown]

NARRATIVE: CASE EVENT DATE: 20240725
